FAERS Safety Report 13829784 (Version 3)
Quarter: 2017Q3

REPORT INFORMATION
  Report Type: Report from Study
  Country: DO (occurrence: DO)
  Receive Date: 20170803
  Receipt Date: 20170816
  Transmission Date: 20171127
  Serious: No
  Sender: FDA-Public Use
  Company Number: PHHY2017DO111978

PATIENT
  Sex: Male

DRUGS (7)
  1. TIMOLOL. [Concomitant]
     Active Substance: TIMOLOL
     Indication: GLAUCOMA
     Route: 065
  2. SCAPHO [Suspect]
     Active Substance: SECUKINUMAB
     Indication: PSORIATIC ARTHROPATHY
     Dosage: 300 MG, QW
     Route: 058
     Dates: start: 20170727
  3. SCAPHO [Suspect]
     Active Substance: SECUKINUMAB
     Dosage: 300 MG, QW
     Route: 058
     Dates: start: 20170803
  4. LOSARTAN. [Concomitant]
     Active Substance: LOSARTAN
     Indication: HYPERTENSION
     Dosage: 1 DF, QD
     Route: 065
  5. METHOTREXATE. [Concomitant]
     Active Substance: METHOTREXATE
     Indication: PRODUCT USED FOR UNKNOWN INDICATION
     Dosage: 6 DF, QW
     Route: 065
  6. SCAPHO [Suspect]
     Active Substance: SECUKINUMAB
     Dosage: 300 MG, QW
     Route: 058
     Dates: start: 20170810
  7. MEPROLOL H [Concomitant]
     Indication: HYPERTENSION
     Dosage: 1 DF, QD
     Route: 065

REACTIONS (9)
  - Cough [Unknown]
  - Lacrimation increased [Unknown]
  - Back pain [Unknown]
  - Tuberculin test positive [Unknown]
  - Skin lesion [Recovered/Resolved]
  - Rhinitis [Unknown]
  - Injection site reaction [Unknown]
  - Ocular hyperaemia [Unknown]
  - Administration site pain [Recovered/Resolved]
